FAERS Safety Report 9676930 (Version 1)
Quarter: 2013Q4

REPORT INFORMATION
  Report Type: Spontaneous
  Country: US (occurrence: US)
  Receive Date: 20131108
  Receipt Date: 20131108
  Transmission Date: 20140711
  Serious: No
  Sender: FDA-Public Use
  Company Number: US-SANOFI-AVENTIS-2013SA093212

PATIENT
  Age: 29 Month
  Sex: Male

DRUGS (1)
  1. ALLEGRA [Suspect]
     Dosage: DOSE:1 TEASPOON(S)
     Route: 048
     Dates: start: 20130907, end: 20130910

REACTIONS (2)
  - Rash [Not Recovered/Not Resolved]
  - Pruritus [Not Recovered/Not Resolved]
